FAERS Safety Report 26124538 (Version 1)
Quarter: 2025Q4

REPORT INFORMATION
  Report Type: Spontaneous
  Country: IN (occurrence: IN)
  Receive Date: 20251205
  Receipt Date: 20251205
  Transmission Date: 20260117
  Serious: Yes (Other)
  Sender: RANBAXY
  Company Number: IN-SUN PHARMACEUTICAL INDUSTRIES LTD-2025R1-537588

PATIENT
  Age: 18 Year
  Sex: Female

DRUGS (1)
  1. OXCARBAZEPINE [Suspect]
     Active Substance: OXCARBAZEPINE
     Indication: Epilepsy
     Dosage: 300 MILLIGRAM, QD
     Route: 065

REACTIONS (4)
  - Drug abuse [Unknown]
  - Dizziness [Unknown]
  - Nausea [Recovering/Resolving]
  - Throat irritation [Unknown]
